FAERS Safety Report 6044828-3 (Version None)
Quarter: 2009Q1

REPORT INFORMATION
  Report Type: 
  Country: None (occurrence: None)
  Receive Date: 20090120
  Receipt Date: 20090115
  Transmission Date: 20090719
  Serious: Yes (Hospitalization, Other)
  Sender: FDA-Public Use
  Company Number: FR-ABBOTT-09P-056-0498418-00

PATIENT
  Sex: Female

DRUGS (9)
  1. KALETRA [Suspect]
     Indication: PROPHYLAXIS AGAINST HIV INFECTION
     Dates: start: 20080516
  2. LAMIVUDINE [Suspect]
     Indication: PROPHYLAXIS AGAINST HIV INFECTION
     Route: 048
     Dates: start: 20080516, end: 20080516
  3. EMTRICITABINE [Suspect]
     Indication: PROPHYLAXIS AGAINST HIV INFECTION
     Route: 048
     Dates: start: 20080516, end: 20080516
  4. RITONAVIR [Concomitant]
     Indication: PROPHYLAXIS AGAINST HIV INFECTION
     Route: 048
     Dates: start: 20080516, end: 20080516
  5. ZIDOVUDINE [Concomitant]
     Indication: PROPHYLAXIS AGAINST HIV INFECTION
     Dosage: 300MG
     Route: 048
     Dates: start: 20080516, end: 20080516
  6. ATAZANAVIR [Concomitant]
     Indication: PROPHYLAXIS AGAINST HIV INFECTION
     Dosage: 150MG
     Route: 048
     Dates: start: 20080516, end: 20080516
  7. DIDANOSINE [Concomitant]
     Indication: PROPHYLAXIS AGAINST HIV INFECTION
     Dosage: 400MG
     Route: 048
     Dates: start: 20080516, end: 20080516
  8. TENOFOVIR DISOPROXIL [Concomitant]
     Indication: PROPHYLAXIS AGAINST HIV INFECTION
     Dosage: 245MG
     Route: 048
     Dates: start: 20080516, end: 20080516
  9. STAVUDINE [Concomitant]
     Indication: PROPHYLAXIS AGAINST HIV INFECTION
     Route: 048
     Dates: start: 20080516, end: 20080516

REACTIONS (5)
  - DIARRHOEA [None]
  - DRUG PRESCRIBING ERROR [None]
  - NAUSEA [None]
  - VERTIGO [None]
  - VOMITING [None]
